FAERS Safety Report 6687385-0 (Version None)
Quarter: 2010Q2

REPORT INFORMATION
  Report Type: 
  Country: None (occurrence: None)
  Receive Date: 20100416
  Receipt Date: 20100416
  Transmission Date: 20101027
  Serious: Yes (Other)
  Sender: FDA-Public Use
  Company Number: None

PATIENT
  Sex: Female
  Weight: 64.5 kg

DRUGS (2)
  1. AMBIEN CR [Suspect]
     Indication: INSOMNIA
     Dosage: ONE TABLET DAILY BY MOUTH
     Route: 048
     Dates: start: 20100301, end: 20100405
  2. AMBIEN CR [Suspect]
     Indication: MENOPAUSE
     Dosage: ONE TABLET DAILY BY MOUTH
     Route: 048
     Dates: start: 20100301, end: 20100405

REACTIONS (8)
  - BLOOD GLUCOSE ABNORMAL [None]
  - BLOOD PRESSURE ABNORMAL [None]
  - CONFUSIONAL STATE [None]
  - FEELING ABNORMAL [None]
  - IRRITABILITY [None]
  - MUSCLE TWITCHING [None]
  - PARAESTHESIA ORAL [None]
  - VISION BLURRED [None]
